FAERS Safety Report 9678572 (Version 2)
Quarter: 2013Q4

REPORT INFORMATION
  Report Type: Spontaneous
  Country: DE (occurrence: DE)
  Receive Date: 20131108
  Receipt Date: 20131108
  Transmission Date: 20140711
  Serious: Yes (Life-Threatening, Hospitalization, Other)
  Sender: FDA-Public Use
  Company Number: DE-BRISTOL-MYERS SQUIBB COMPANY-19113935

PATIENT
  Age: 46 Year
  Sex: Female
  Weight: 105 kg

DRUGS (3)
  1. FORXIGA [Suspect]
     Route: 048
  2. METFORMIN HCL [Suspect]
     Dosage: DOSAGE:1000MG
     Route: 048
  3. PROPAFENONE [Concomitant]

REACTIONS (6)
  - Pneumonia [Recovering/Resolving]
  - Ischaemic stroke [Recovering/Resolving]
  - Metabolic acidosis [Not Recovered/Not Resolved]
  - Sepsis [Not Recovered/Not Resolved]
  - Brain stem infarction [Not Recovered/Not Resolved]
  - Dehydration [Not Recovered/Not Resolved]
